FAERS Safety Report 12464949 (Version 1)
Quarter: 2016Q2

REPORT INFORMATION
  Report Type: Spontaneous
  Country: CN (occurrence: CN)
  Receive Date: 20160614
  Receipt Date: 20160614
  Transmission Date: 20160815
  Serious: Yes (Other)
  Sender: FDA-Public Use
  Company Number: CN-JNJFOC-20160607693

PATIENT

DRUGS (2)
  1. IBUPROFEN. [Suspect]
     Active Substance: IBUPROFEN
     Route: 048
  2. IBUPROFEN. [Suspect]
     Active Substance: IBUPROFEN
     Indication: RENAL COLIC
     Route: 048

REACTIONS (16)
  - Wrong drug administered [Unknown]
  - Off label use [Unknown]
  - Palpitations [Unknown]
  - Nausea [Unknown]
  - Vomiting [Unknown]
  - Dyspnoea [Unknown]
  - Product use issue [Unknown]
  - Erythema [Unknown]
  - Blood pressure decreased [Unknown]
  - Pruritus [Unknown]
  - Dizziness [Unknown]
  - Dry mouth [Unknown]
  - Vision blurred [Unknown]
  - Headache [Unknown]
  - Urinary retention [Unknown]
  - Rash [Unknown]
